FAERS Safety Report 4906330-9 (Version None)
Quarter: 2006Q1

REPORT INFORMATION
  Report Type: 
  Country: None (occurrence: None)
  Receive Date: 20060209
  Receipt Date: 20060130
  Transmission Date: 20060701
  Serious: Yes (Hospitalization)
  Sender: FDA-Public Use
  Company Number: FR-AMGEN-UK166936

PATIENT
  Age: 78 Year
  Sex: Female

DRUGS (2)
  1. ARANESP [Suspect]
     Indication: RENAL FAILURE CHRONIC
     Route: 058
     Dates: start: 20060101
  2. CYCLOPENTOLATE HCL [Concomitant]
     Route: 065
     Dates: start: 20060101

REACTIONS (2)
  - AGRANULOCYTOSIS [None]
  - FEBRILE BONE MARROW APLASIA [None]
